FAERS Safety Report 4656412-4 (Version None)
Quarter: 2005Q2

REPORT INFORMATION
  Report Type: 
  Country: None (occurrence: None)
  Receive Date: 20050509
  Receipt Date: 20040621
  Transmission Date: 20051028
  Serious: Yes (Death, Life-Threatening, Hospitalization, Disabling)
  Sender: FDA-Public Use
  Company Number: PHHO2004CA09035

PATIENT
  Age: 56 Year
  Sex: Male

DRUGS (6)
  1. MYCOPHENOLATE MOFETIL [Concomitant]
     Indication: HEART TRANSPLANT
     Dosage: 2 G, BID
     Route: 048
  2. NEORAL [Suspect]
     Dosage: 125 MG, BID
     Route: 048
     Dates: start: 20031127
  3. NEORAL [Suspect]
     Dosage: 100 MG, BID
     Route: 048
     Dates: start: 20040528
  4. SIMULECT [Suspect]
     Indication: HEART TRANSPLANT
     Dosage: 20 MG, ONCE/SINGLE
     Route: 042
     Dates: start: 20031127, end: 20031127
  5. SIMULECT [Suspect]
     Dosage: 20 MG, DAY 4
     Route: 042
     Dates: start: 20031201, end: 20031201
  6. GANCICLOVIR [Suspect]

REACTIONS (13)
  - ANURIA [None]
  - ASPERGILLOSIS [None]
  - CYTOMEGALOVIRUS ANTIBODY POSITIVE [None]
  - DIZZINESS [None]
  - GUILLAIN-BARRE SYNDROME [None]
  - PNEUMONIA PRIMARY ATYPICAL [None]
  - PSEUDOMONAS INFECTION [None]
  - PULMONARY CONGESTION [None]
  - PYREXIA [None]
  - RENAL FAILURE ACUTE [None]
  - RESPIRATORY FAILURE [None]
  - SEPSIS [None]
  - TRACHEAL OPERATION [None]
